FAERS Safety Report 7831145-1 (Version None)
Quarter: 2011Q4

REPORT INFORMATION
  Report Type: 
  Country: None (occurrence: None)
  Receive Date: 20111021
  Receipt Date: 20111018
  Transmission Date: 20120403
  Serious: Yes (Life-Threatening, Hospitalization)
  Sender: FDA-Public Use
  Company Number: FR-BRISTOL-MYERS SQUIBB COMPANY-16174369

PATIENT
  Age: 55 Year
  Sex: Female

DRUGS (7)
  1. GLICLAZIDE [Suspect]
     Dosage: INTERRUPTED ON 05-SEP-2011
     Route: 048
  2. IRBESARTAN AND HYDROCHLOROTHIAZIDE [Suspect]
     Dosage: 1DF=COAPROVEL 300MG/25 MG.INTERRUPTED ON 05-SEP RESTARTED ON 23-SEP-2011.
     Route: 048
  3. METFORMIN HCL [Suspect]
     Dosage: INTERRUPTED ON 05-SEP-2011
     Route: 048
  4. KETOPROFEN [Suspect]
     Dosage: INTERRUPTED ON 05-SEP-2011
     Route: 048
  5. RILMENIDINE [Suspect]
     Dosage: INTERRUPTED ON 05-SEP-2011 AND RESTARTED ON 14-SEPT-2011
     Route: 048
  6. MOXONIDINE [Suspect]
     Dosage: INTERRUPTED ON 05-SEP-2011
     Route: 048
  7. LERCANIDIPINE [Suspect]
     Dosage: INTERRUPTED ON 05-SEP-2011 AND RESTARTED ON 15-SEP-2011
     Route: 048

REACTIONS (6)
  - BRADYCARDIA [None]
  - DEHYDRATION [None]
  - RENAL FAILURE ACUTE [None]
  - CARDIAC ARREST [None]
  - LACTIC ACIDOSIS [None]
  - ALTERED STATE OF CONSCIOUSNESS [None]
